FAERS Safety Report 9426686 (Version 1)
Quarter: 2013Q3

REPORT INFORMATION
  Report Type: Spontaneous
  Country: US (occurrence: US)
  Receive Date: 20130730
  Receipt Date: 20130730
  Transmission Date: 20140515
  Serious: Yes (Other)
  Sender: FDA-Public Use
  Company Number: US-SANOFI-AVENTIS-2012SA057111

PATIENT
  Age: 28 Year
  Sex: Male
  Weight: 60 kg

DRUGS (9)
  1. ZOLPIDEM TARTRATE [Suspect]
     Indication: INSOMNIA
     Route: 065
  2. NORTRIPTYLINE [Suspect]
     Route: 065
  3. LYRICA [Suspect]
     Indication: NEURALGIA
     Route: 065
  4. LISINOPRIL [Suspect]
     Indication: HYPERTENSION
     Route: 065
  5. DARUNAVIR [Suspect]
     Indication: HIV INFECTION
     Route: 065
  6. EMTRICITABINE/TENOFOVIR DISOPROXIL FUMARATE [Suspect]
     Indication: HIV INFECTION
     Route: 065
  7. EMTRICITABINE/TENOFOVIR DISOPROXIL FUMARATE [Suspect]
     Indication: DIABETES MELLITUS
     Route: 065
  8. MARINOL [Suspect]
     Indication: PAIN
     Route: 065
     Dates: start: 201108
  9. NORVIR [Suspect]
     Indication: HIV INFECTION
     Route: 065

REACTIONS (4)
  - Suicidal ideation [Unknown]
  - Sleep disorder [Unknown]
  - Tremor [Unknown]
  - Insomnia [Unknown]
